FAERS Safety Report 8485559-X (Version None)
Quarter: 2012Q3

REPORT INFORMATION
  Report Type: 
  Country: None (occurrence: None)
  Receive Date: 20120703
  Receipt Date: 20120620
  Transmission Date: 20120928
  Serious: No
  Sender: FDA-Public Use
  Company Number: US-ASTRAZENECA-2012SE41942

PATIENT
  Age: 65 Year
  Sex: Female

DRUGS (6)
  1. PRILOSEC OTC [Suspect]
     Route: 048
  2. TAGAMET [Concomitant]
  3. NEXIUM [Suspect]
     Route: 048
  4. PRILOSEC [Suspect]
     Route: 048
  5. PROTONIX [Concomitant]
  6. ZANTAC [Concomitant]

REACTIONS (3)
  - DRUG INEFFECTIVE [None]
  - MALAISE [None]
  - DRUG DOSE OMISSION [None]
